FAERS Safety Report 4550086-9 (Version None)
Quarter: 2005Q1

REPORT INFORMATION
  Report Type: 
  Country: None (occurrence: None)
  Receive Date: 20050110
  Receipt Date: 20050103
  Transmission Date: 20050727
  Serious: Yes (Hospitalization, Other)
  Sender: FDA-Public Use
  Company Number: 2004074283

PATIENT
  Sex: Female

DRUGS (1)
  1. NEURONTIN [Suspect]
     Indication: HERPES ZOSTER
     Dates: start: 20040419

REACTIONS (4)
  - BALANCE DISORDER [None]
  - DEAFNESS [None]
  - PAIN [None]
  - TINNITUS [None]
